FAERS Safety Report 23502392 (Version 1)
Quarter: 2024Q1

REPORT INFORMATION
  Report Type: Spontaneous
  Country: US (occurrence: US)
  Receive Date: 20240208
  Receipt Date: 20240208
  Transmission Date: 20240410
  Serious: No
  Sender: FDA-Public Use
  Company Number: US-INTRA-CELLULAR THERAPIES, INC.-2023ICT00273

PATIENT
  Age: 30 Year
  Sex: Female
  Weight: 77.098 kg

DRUGS (5)
  1. CAPLYTA [Suspect]
     Active Substance: LUMATEPERONE
     Indication: Bipolar disorder
     Dosage: UNK
     Dates: start: 20230214
  2. SEROQUEL [Concomitant]
     Active Substance: QUETIAPINE FUMARATE
  3. KLONOPIN [Concomitant]
     Active Substance: CLONAZEPAM
  4. PRAZOSIN [Concomitant]
     Active Substance: PRAZOSIN
  5. GABAPENTIN [Concomitant]
     Active Substance: GABAPENTIN

REACTIONS (2)
  - Migraine [Unknown]
  - Headache [Unknown]

NARRATIVE: CASE EVENT DATE: 20230201
